FAERS Safety Report 8883654 (Version 2)
Quarter: 2013Q2

REPORT INFORMATION
  Report Type: Report from Study
  Country: JP (occurrence: JP)
  Receive Date: 20121102
  Receipt Date: 20130509
  Transmission Date: 20140414
  Serious: Yes (Death)
  Sender: FDA-Public Use
  Company Number: JP-OTSUKA-JP-2012-16707

PATIENT
  Age: 83 Year
  Sex: Male
  Weight: 75 kg

DRUGS (8)
  1. SAMSCA [Suspect]
     Indication: FLUID RETENTION
     Dosage: 7.5 MG MILLIGRAM(S), QAM
     Route: 048
     Dates: start: 20120717, end: 20120719
  2. BAYASPIRIN [Concomitant]
     Indication: PROPHYLAXIS
     Dosage: 100 MG MILLIGRAM(S), DAILY DOSE
     Route: 048
     Dates: end: 20120719
  3. TANATRIL [Concomitant]
     Indication: PROPHYLAXIS
     Dosage: 2.5 MG MILLIGRAM(S), DAILY DOSE
     Route: 048
     Dates: end: 20120719
  4. SELARA [Concomitant]
     Indication: PROPHYLAXIS
     Dosage: 50 MG MILLIGRAM(S), DAILY DOSE
     Route: 048
     Dates: end: 20120719
  5. PARIET [Concomitant]
     Indication: PROPHYLAXIS
     Dosage: 10 MG MILLIGRAM(S), DAILY DOSE
     Route: 048
     Dates: end: 20120719
  6. LUPRAC [Concomitant]
     Indication: PROPHYLAXIS
     Dosage: 8 MG MILLIGRAM(S), DAILY DOSE
     Route: 048
     Dates: end: 20120719
  7. DOBUTAMINE [Concomitant]
     Indication: CARDIAC FAILURE
     Dosage: 7 ML MILLILITRE(S), Q1HR
     Route: 041
     Dates: end: 20120719
  8. LASIX [Concomitant]
     Indication: CARDIAC FAILURE
     Dosage: 40 MG MILLIGRAM(S), DAILY DOSE
     Route: 048
     Dates: end: 20120719

REACTIONS (1)
  - Low cardiac output syndrome [Fatal]
